FAERS Safety Report 13929709 (Version 2)
Quarter: 2018Q4

REPORT INFORMATION
  Report Type: Spontaneous
  Country: JP (occurrence: JP)
  Receive Date: 20170901
  Receipt Date: 20181017
  Transmission Date: 20190204
  Serious: Yes (Other)
  Sender: FDA-Public Use
  Company Number: JP-RECORDATI RARE DISEASES-JP-R13005-17-00190

PATIENT
  Sex: Male
  Weight: .53 kg

DRUGS (14)
  1. INDACIN [Suspect]
     Active Substance: INDOMETHACIN
     Indication: PATENT DUCTUS ARTERIOSUS
     Route: 042
     Dates: start: 20170130
  2. BIO-THREE [Concomitant]
     Active Substance: HERBALS
     Indication: PROPHYLAXIS
     Route: 048
     Dates: start: 20170130, end: 20170509
  3. BIFIDOBACTERIUM [Concomitant]
     Active Substance: BIFIDOBACTERIUM LONGUM
     Indication: PROPHYLAXIS
     Route: 048
     Dates: start: 20170130, end: 20170509
  4. RESPIA [Suspect]
     Active Substance: CAFFEINE
     Indication: INFANTILE APNOEA
     Route: 041
     Dates: start: 20170130, end: 20170130
  5. RESPIA [Suspect]
     Active Substance: CAFFEINE
     Route: 048
     Dates: start: 20170309, end: 20170516
  6. AMIKACIN. [Concomitant]
     Active Substance: AMIKACIN
     Indication: PROPHYLAXIS
     Route: 042
     Dates: start: 20170129, end: 20170130
  7. THYRADIN-S POWDER [Concomitant]
     Indication: PRODUCT USED FOR UNKNOWN INDICATION
     Route: 048
     Dates: start: 20170214
  8. GASTER [Concomitant]
     Active Substance: FAMOTIDINE
     Indication: PROPHYLAXIS
     Route: 042
     Dates: start: 20170224, end: 20170228
  9. RESPIA [Suspect]
     Active Substance: CAFFEINE
     Route: 041
     Dates: start: 20170131, end: 20170214
  10. RESPIA [Suspect]
     Active Substance: CAFFEINE
     Route: 041
     Dates: start: 20170215, end: 20170308
  11. SULBACILLIN [Concomitant]
     Active Substance: AMPICILLIN SODIUM\SULBACTAM SODIUM
     Indication: PROPHYLAXIS
     Route: 042
     Dates: start: 20170129, end: 20170130
  12. PRODIF [Concomitant]
     Active Substance: FOSFLUCONAZOLE
     Indication: PROPHYLAXIS
     Route: 042
     Dates: start: 20170129, end: 20170310
  13. HYDROCORTONE [Concomitant]
     Active Substance: HYDROCORTISONE
     Indication: BRONCHOPULMONARY DYSPLASIA
     Dates: start: 20170130
  14. PULMICORT RESPULES [Concomitant]
     Active Substance: BUDESONIDE
     Indication: PROPHYLAXIS
     Route: 055
     Dates: start: 20170215, end: 20170401

REACTIONS (6)
  - Metabolic acidosis [Recovered/Resolved]
  - Hyperglycaemia [Recovered/Resolved]
  - Oliguria [Recovered/Resolved]
  - Infantile apnoea [Unknown]
  - Condition aggravated [Unknown]
  - Circulatory collapse [Recovered/Resolved]

NARRATIVE: CASE EVENT DATE: 20170213
